FAERS Safety Report 5167044-6 (Version None)
Quarter: 2006Q4

REPORT INFORMATION
  Report Type: 
  Country: None (occurrence: None)
  Receive Date: 20061129
  Receipt Date: 20061123
  Transmission Date: 20070319
  Serious: Yes (Life-Threatening, Hospitalization, Disabling)
  Sender: FDA-Public Use
  Company Number: 2006-150832-NL

PATIENT
  Age: 36 Year
  Sex: Female

DRUGS (2)
  1. CHORIONIC GONADOTROPIN [Suspect]
     Dosage: SUBCUTANEOUS
     Route: 058
     Dates: start: 20040219, end: 20040429
  2. FOLIC ACID [Concomitant]

REACTIONS (1)
  - BREAST CANCER STAGE III [None]
